FAERS Safety Report 4738487-7 (Version None)
Quarter: 2005Q3

REPORT INFORMATION
  Report Type: 
  Country: None (occurrence: None)
  Receive Date: 20050809
  Receipt Date: 20050126
  Transmission Date: 20060218
  Serious: Yes (Death, Hospitalization, Other)
  Sender: FDA-Public Use
  Company Number: JP-BRISTOL-MYERS SQUIBB COMPANY-12860714

PATIENT
  Age: 14 Year
  Sex: Male

DRUGS (12)
  1. IFOMIDE [Suspect]
     Indication: SYNOVIAL SARCOMA
     Route: 042
     Dates: start: 19980824, end: 19980827
  2. UROMITEXAN [Suspect]
     Indication: SYNOVIAL SARCOMA
     Route: 042
     Dates: start: 19980824, end: 19980827
  3. DOXORUBICIN HCL [Concomitant]
     Dates: start: 19980824, end: 19980827
  4. SODIUM BICARBONATE [Concomitant]
     Dates: start: 19980824, end: 19980828
  5. ONDANSETRON HCL [Concomitant]
     Dates: start: 19980824, end: 19980828
  6. FAMOTIDINE [Concomitant]
     Dates: start: 19980825, end: 19980828
  7. DIAZEPAM [Concomitant]
     Dates: start: 19980826, end: 19980826
  8. CHLORPROMAZINE HCL [Concomitant]
     Dates: start: 19980826, end: 19980827
  9. CIMETIDINE [Concomitant]
     Dates: start: 19980826, end: 19980827
  10. FOSFOMYCIN [Concomitant]
     Dates: start: 19980826, end: 19980828
  11. ACETAZOLAMIDE [Concomitant]
     Dates: start: 19980826, end: 19980828
  12. CAFFEINE + SODIUM BENZOATE [Concomitant]
     Dates: start: 19980826, end: 19980828

REACTIONS (14)
  - BLOOD PRESSURE DECREASED [None]
  - BRAIN STEM SYNDROME [None]
  - CARDIAC ARREST [None]
  - CARDIO-RESPIRATORY ARREST [None]
  - COMA [None]
  - DEATH [None]
  - ENCEPHALOPATHY [None]
  - FAECAL INCONTINENCE [None]
  - HEART RATE INCREASED [None]
  - METABOLIC ACIDOSIS [None]
  - MUSCLE RIGIDITY [None]
  - PULMONARY EMBOLISM [None]
  - RESPIRATORY DEPRESSION [None]
  - VENTRICULAR FIBRILLATION [None]
